FAERS Safety Report 23230069 (Version 1)
Quarter: 2023Q4

REPORT INFORMATION
  Report Type: Spontaneous
  Country: US (occurrence: None)
  Receive Date: 20231123
  Receipt Date: 20231123
  Transmission Date: 20240109
  Serious: Yes (Hospitalization)
  Sender: FDA-Public Use
  Company Number: None

PATIENT
  Age: 77 Year
  Sex: Male
  Weight: 77.3 kg

DRUGS (2)
  1. CARBOPLATIN [Suspect]
     Active Substance: CARBOPLATIN
     Dates: end: 20231010
  2. TAXOL [Suspect]
     Active Substance: PACLITAXEL
     Dates: end: 20231010

REACTIONS (10)
  - Dyspnoea [None]
  - Chest pain [None]
  - Dyspnoea exertional [None]
  - Loss of personal independence in daily activities [None]
  - Productive cough [None]
  - Sputum discoloured [None]
  - Tachycardia [None]
  - Pulmonary oedema [None]
  - Pneumonia [None]
  - Pneumonia [None]

NARRATIVE: CASE EVENT DATE: 20231117
